FAERS Safety Report 14855976 (Version 2)
Quarter: 2018Q2

REPORT INFORMATION
  Report Type: Spontaneous
  Country: US (occurrence: US)
  Receive Date: 20180507
  Receipt Date: 20180521
  Transmission Date: 20180711
  Serious: No
  Sender: FDA-Public Use
  Company Number: US-GLAXOSMITHKLINE-US2018077548

PATIENT
  Sex: Female

DRUGS (7)
  1. MYRBETRIQ [Concomitant]
     Active Substance: MIRABEGRON
  2. ALEVE [Concomitant]
     Active Substance: NAPROXEN SODIUM
  3. IPRATROPIUM NASAL SPRAY [Concomitant]
     Active Substance: IPRATROPIUM
  4. LOSARTAN. [Concomitant]
     Active Substance: LOSARTAN
  5. BREO ELLIPTA [Suspect]
     Active Substance: FLUTICASONE FUROATE\VILANTEROL TRIFENATATE
     Dosage: UNK
  6. FLUTICASONE NASAL SPRAY [Concomitant]
     Active Substance: FLUTICASONE
  7. BREO ELLIPTA [Suspect]
     Active Substance: FLUTICASONE FUROATE\VILANTEROL TRIFENATATE
     Indication: DYSPNOEA
     Dosage: 1 PUFF(S), QD
     Route: 055

REACTIONS (3)
  - Chills [Unknown]
  - Feeling cold [Unknown]
  - Dysphonia [Unknown]
